FAERS Safety Report 21235747 (Version 4)
Quarter: 2022Q3

REPORT INFORMATION
  Report Type: Spontaneous
  Country: US (occurrence: US)
  Receive Date: 20220821
  Receipt Date: 20220912
  Transmission Date: 20221026
  Serious: No
  Sender: FDA-Public Use
  Company Number: US-SANOFI-01236797

PATIENT
  Age: 73 Year
  Sex: Male

DRUGS (1)
  1. LANTUS [Suspect]
     Active Substance: INSULIN GLARGINE
     Indication: Diabetes mellitus
     Dosage: 30 IU, QD

REACTIONS (1)
  - Malaise [Not Recovered/Not Resolved]
